FAERS Safety Report 8163111-3 (Version None)
Quarter: 2012Q1

REPORT INFORMATION
  Report Type: 
  Country: None (occurrence: None)
  Receive Date: 20120224
  Receipt Date: 20110214
  Transmission Date: 20120608
  Serious: No
  Sender: FDA-Public Use
  Company Number: US-PFIZER INC-K201100155

PATIENT
  Age: 64 Year
  Sex: Female
  Weight: 64.853 kg

DRUGS (7)
  1. GEODON [Concomitant]
     Indication: BIPOLAR DISORDER
     Dosage: UNK
  2. NORVASC [Concomitant]
     Indication: HYPERTENSION
     Dosage: UNK
  3. COZAAR [Concomitant]
     Indication: HYPERTENSION
     Dosage: UNK
  4. MORPHINE SULFATE [Concomitant]
     Indication: BACK PAIN
     Dosage: UNK
     Route: 048
  5. CARTIA XT [Concomitant]
     Indication: HYPERTENSION
     Dosage: UNK
  6. BACLOFEN [Concomitant]
     Indication: MUSCLE SPASMS
     Dosage: UNK
  7. FLECTOR [Suspect]
     Indication: BACK PAIN
     Dosage: 1 PATCH, EVERY 12 HOURS
     Route: 061
     Dates: start: 20110118, end: 20110123

REACTIONS (7)
  - HEADACHE [None]
  - NAUSEA [None]
  - DYSPNOEA [None]
  - CONFUSIONAL STATE [None]
  - ASTHENIA [None]
  - DYSPEPSIA [None]
  - DIZZINESS [None]
